FAERS Safety Report 14693206 (Version 1)
Quarter: 2018Q1

REPORT INFORMATION
  Report Type: Report from Study
  Country: FI (occurrence: FI)
  Receive Date: 20180329
  Receipt Date: 20180329
  Transmission Date: 20180509
  Serious: Yes (Other)
  Sender: FDA-Public Use
  Company Number: FI-MYLANLABS-2018M1018815

PATIENT
  Age: 64 Year
  Sex: Female

DRUGS (5)
  1. LEPONEX [Suspect]
     Active Substance: CLOZAPINE
     Dosage: 400 MG, QD
  2. LEPONEX [Suspect]
     Active Substance: CLOZAPINE
     Indication: PRODUCT USED FOR UNKNOWN INDICATION
     Dosage: 200 MG, QD
  3. LEPONEX [Suspect]
     Active Substance: CLOZAPINE
     Dosage: 200 MG, QD
  4. CITALOPRAM [Concomitant]
     Active Substance: CITALOPRAM HYDROBROMIDE
     Indication: PRODUCT USED FOR UNKNOWN INDICATION
     Dosage: 40 MG, QD
  5. LAMICTAL [Concomitant]
     Active Substance: LAMOTRIGINE
     Indication: PRODUCT USED FOR UNKNOWN INDICATION
     Dosage: 200 MG, QD

REACTIONS (5)
  - Antipsychotic drug level above therapeutic [Unknown]
  - Renal failure [Unknown]
  - Sepsis [Recovering/Resolving]
  - Hydronephrosis [Unknown]
  - Neuroleptic malignant syndrome [Unknown]

NARRATIVE: CASE EVENT DATE: 2016
